FAERS Safety Report 9571933 (Version 1)
Quarter: 2013Q3

REPORT INFORMATION
  Report Type: Spontaneous
  Country: IN (occurrence: None)
  Receive Date: 20130927
  Receipt Date: 20130927
  Transmission Date: 20140515
  Serious: Yes (Hospitalization)
  Sender: FDA-Public Use
  Company Number: SYM-2013-10983

PATIENT
  Age: 65 Year
  Sex: Male

DRUGS (4)
  1. FLUOROURACIL [Suspect]
     Indication: OESOPHAGEAL ADENOCARCINOMA
     Route: 040
  2. ENALAPRIL (ENALAPRIL) (ENALAPRIL) [Concomitant]
  3. CISPLATIN (CISPLATIN) (CISPLATIN) [Concomitant]
  4. LEUCOVORIN CALCIUM(CALCIUM FOLINATE) (CALCIUM FOLINATE) [Concomitant]

REACTIONS (1)
  - Arteriospasm coronary [None]
